FAERS Safety Report 8591555-4 (Version None)
Quarter: 2012Q3

REPORT INFORMATION
  Report Type: 
  Country: None (occurrence: None)
  Receive Date: 20120801
  Receipt Date: 20120719
  Transmission Date: 20120928
  Serious: Yes (Hospitalization, Other)
  Sender: FDA-Public Use
  Company Number: 2012MA009064

PATIENT
  Age: 27 Month
  Sex: Female

DRUGS (1)
  1. FEVERALL [Suspect]

REACTIONS (4)
  - METABOLIC ACIDOSIS [None]
  - TOXICITY TO VARIOUS AGENTS [None]
  - SOMNOLENCE [None]
  - ANALGESIC DRUG LEVEL INCREASED [None]
